FAERS Safety Report 8505141-5 (Version None)
Quarter: 2012Q3

REPORT INFORMATION
  Report Type: 
  Country: None (occurrence: None)
  Receive Date: 20120712
  Receipt Date: 20120711
  Transmission Date: 20120928
  Serious: Yes (Hospitalization)
  Sender: FDA-Public Use
  Company Number: PHHY2012ES059424

PATIENT
  Age: 70 Year
  Sex: Male

DRUGS (3)
  1. RASILEZ [Suspect]
     Indication: HYPERTENSION
     Dates: start: 20120603
  2. MOXON [Suspect]
     Indication: HYPERTENSION
     Dates: start: 20120603
  3. BISOPROLOL FUMARATE [Concomitant]
     Indication: HYPERTENSION
     Dosage: 5 MG, QD
     Route: 048

REACTIONS (5)
  - DERMATITIS EXFOLIATIVE [None]
  - LIVER DISORDER [None]
  - NEPHROPATHY [None]
  - PYREXIA [None]
  - EOSINOPHILIA [None]
